FAERS Safety Report 18085960 (Version 1)
Quarter: 2020Q3

REPORT INFORMATION
  Report Type: Spontaneous
  Country: US (occurrence: US)
  Receive Date: 20200729
  Receipt Date: 20200729
  Transmission Date: 20201103
  Serious: Yes (Other)
  Sender: FDA-Public Use
  Company Number: None

PATIENT
  Age: 80 Year
  Sex: Male
  Weight: 74.4 kg

DRUGS (22)
  1. NPH INSULIN [Concomitant]
     Active Substance: INSULIN BEEF
     Dates: start: 20200706, end: 20200710
  2. MELATONIN [Concomitant]
     Active Substance: MELATONIN
     Dates: start: 20200706, end: 20200709
  3. ATRACURIUM [Concomitant]
     Active Substance: ATRACURIUM
     Dates: start: 20200709, end: 20200710
  4. INSULIN LISPRO [Concomitant]
     Active Substance: INSULIN LISPRO
     Dates: start: 20200706, end: 20200709
  5. ISOPROTERENOL. [Concomitant]
     Active Substance: ISOPROTERENOL
     Dates: start: 20200708, end: 20200708
  6. DEXAMETHASONE. [Concomitant]
     Active Substance: DEXAMETHASONE
     Dates: start: 20200705, end: 20200707
  7. INSULIN GLARGINE [Concomitant]
     Active Substance: INSULIN GLARGINE
     Dates: start: 20200707, end: 20200707
  8. ATROPINE. [Concomitant]
     Active Substance: ATROPINE
     Dates: start: 20200707, end: 20200707
  9. NOREPINEPHRINE. [Concomitant]
     Active Substance: NOREPINEPHRINE
     Dates: start: 20200707, end: 20200710
  10. VASOPRESSIN. [Concomitant]
     Active Substance: VASOPRESSIN
     Dates: start: 20200709, end: 20200710
  11. REMDESIVIR. [Suspect]
     Active Substance: REMDESIVIR
     Indication: COVID-19
     Dosage: ?          OTHER FREQUENCY:200MG X 1,100MG QD;?
     Route: 041
     Dates: start: 20200706, end: 20200710
  12. FAMOTIDINE. [Concomitant]
     Active Substance: FAMOTIDINE
     Dates: start: 20200706, end: 20200709
  13. HYDROMORPHONE [Concomitant]
     Active Substance: HYDROMORPHONE
     Dates: start: 20200707, end: 20200710
  14. INSULIN REGULAR [Concomitant]
     Active Substance: INSULIN NOS
     Dates: start: 20200706, end: 20200710
  15. VANCOMYCIN [Concomitant]
     Active Substance: VANCOMYCIN
     Dates: start: 20200709, end: 20200709
  16. DOPAMINE [Concomitant]
     Active Substance: DOPAMINE HYDROCHLORIDE
     Dates: start: 20200707, end: 20200710
  17. MIDAZOLAM. [Concomitant]
     Active Substance: MIDAZOLAM
     Dates: start: 20200707, end: 20200710
  18. HYDROCORTISONE SOD SUCC [Concomitant]
     Active Substance: HYDROCORTISONE
     Dates: start: 20200709, end: 20200710
  19. PIPERACILLIN AND TAZOBACTAM [Concomitant]
     Active Substance: PIPERACILLIN SODIUM\TAZOBACTAM SODIUM
     Dates: start: 20200709, end: 20200710
  20. ENOXAPARIN [Concomitant]
     Active Substance: ENOXAPARIN
     Dates: start: 20200706, end: 20200709
  21. SODIUM BICARBONATE. [Concomitant]
     Active Substance: SODIUM BICARBONATE
     Dates: start: 20200709, end: 20200710
  22. PROPOFOL. [Concomitant]
     Active Substance: PROPOFOL
     Dates: start: 20200707, end: 20200707

REACTIONS (4)
  - Blood creatinine increased [None]
  - Therapy non-responder [None]
  - Disseminated intravascular coagulation [None]
  - Blood pressure decreased [None]

NARRATIVE: CASE EVENT DATE: 20200710
